FAERS Safety Report 12879503 (Version 1)
Quarter: 2016Q4

REPORT INFORMATION
  Report Type: Other
  Country: IN (occurrence: IN)
  Receive Date: 20161025
  Receipt Date: 20161025
  Transmission Date: 20170207
  Serious: Yes (Other)
  Sender: FDA-Public Use
  Company Number: IN-LUPIN PHARMACEUTICALS INC.-2016-00346

PATIENT
  Age: 8 Year
  Sex: Male

DRUGS (2)
  1. AMIKACIN [Concomitant]
     Active Substance: AMIKACIN
     Indication: MENINGITIS
     Dosage: 15 MG/KG
     Route: 065
  2. CEFTRIAXONE. [Suspect]
     Active Substance: CEFTRIAXONE
     Indication: MENINGITIS
     Dosage: 100 MG/KG
     Route: 065

REACTIONS (1)
  - Cholelithiasis [Recovered/Resolved]
